FAERS Safety Report 24435664 (Version 1)
Quarter: 2024Q4

REPORT INFORMATION
  Report Type: Spontaneous
  Country: FI (occurrence: FI)
  Receive Date: 20241015
  Receipt Date: 20241015
  Transmission Date: 20250115
  Serious: Yes (Other)
  Sender: JOHNSON AND JOHNSON
  Company Number: None

PATIENT
  Sex: Female

DRUGS (1)
  1. RISPERDAL [Suspect]
     Active Substance: RISPERIDONE
     Indication: Product used for unknown indication
     Route: 065

REACTIONS (10)
  - Akinesia [Unknown]
  - Diabetes mellitus inadequate control [Unknown]
  - Oedema peripheral [Unknown]
  - Musculoskeletal stiffness [Unknown]
  - Constipation [Unknown]
  - Confusional state [Unknown]
  - Impaired work ability [Unknown]
  - Anhedonia [Unknown]
  - Asthenia [Unknown]
  - Dehydration [Unknown]
